FAERS Safety Report 13255987 (Version 1)
Quarter: 2017Q1

REPORT INFORMATION
  Report Type: Spontaneous
  Country: US (occurrence: US)
  Receive Date: 20170219
  Receipt Date: 20170219
  Transmission Date: 20170428
  Serious: Yes (Other)
  Sender: FDA-Public Use
  Company Number: None

PATIENT
  Age: 11 Year
  Sex: Female
  Weight: 28.35 kg

DRUGS (3)
  1. MIRALAX [Suspect]
     Active Substance: POLYETHYLENE GLYCOL 3350
     Indication: ULTRASOUND SCAN ABNORMAL
     Dosage: ?          QUANTITY:1 GRAMS 17;?
     Route: 048
     Dates: start: 20170216, end: 20170219
  2. ZYRTEC [Concomitant]
     Active Substance: CETIRIZINE HYDROCHLORIDE
  3. FLONASE [Concomitant]
     Active Substance: FLUTICASONE PROPIONATE

REACTIONS (5)
  - Abnormal behaviour [None]
  - Hypoaesthesia [None]
  - Muscular weakness [None]
  - Muscle fatigue [None]
  - Balance disorder [None]

NARRATIVE: CASE EVENT DATE: 20170219
